FAERS Safety Report 5227617-9 (Version None)
Quarter: 2007Q1

REPORT INFORMATION
  Report Type: 
  Country: None (occurrence: None)
  Receive Date: 20061201
  Receipt Date: 20061017
  Transmission Date: 20070707
  Serious: No
  Sender: FDA-Public Use
  Company Number: US200610003021

PATIENT
  Age: 36 Year
  Sex: Male
  Weight: 136.1 kg

DRUGS (1)
  1. CYMBALTA [Suspect]
     Indication: DEPRESSION
     Dosage: 60 MG
     Dates: start: 20060601

REACTIONS (3)
  - AGITATION [None]
  - ANGER [None]
  - DRUG INEFFECTIVE [None]
